FAERS Safety Report 5115614-3 (Version None)
Quarter: 2006Q3

REPORT INFORMATION
  Report Type: 
  Country: None (occurrence: None)
  Receive Date: 20060927
  Receipt Date: 20060710
  Transmission Date: 20061208
  Serious: Yes (Hospitalization)
  Sender: FDA-Public Use
  Company Number: US-BAYER-200614704BWH

PATIENT
  Age: 51 Year
  Sex: Male
  Weight: 54 kg

DRUGS (4)
  1. NEXAVAR [Suspect]
     Indication: METASTATIC RENAL CELL CARCINOMA
     Dosage: TOTAL DAILY DOSE: 800 MG  UNIT DOSE: 200 MG
     Route: 048
     Dates: start: 20060519, end: 20060528
  2. NEXAVAR [Suspect]
     Dosage: TOTAL DAILY DOSE: 400 MG  UNIT DOSE: 200 MG
     Route: 048
     Dates: start: 20060528
  3. NEXAVAR [Suspect]
     Dosage: TOTAL DAILY DOSE: 400 MG  UNIT DOSE: 200 MG
     Route: 048
  4. PAIN MEDICATION (NOS) [Concomitant]

REACTIONS (13)
  - ANAL FISSURE [None]
  - BLISTER [None]
  - DIARRHOEA [None]
  - ENTEROCOCCAL INFECTION [None]
  - GANGRENE [None]
  - IMMUNE SYSTEM DISORDER [None]
  - NECROTISING FASCIITIS [None]
  - PAIN IN EXTREMITY [None]
  - PALMAR-PLANTAR ERYTHRODYSAESTHESIA SYNDROME [None]
  - PERIRECTAL ABSCESS [None]
  - SEPSIS [None]
  - SKIN EXFOLIATION [None]
  - VOMITING [None]
